FAERS Safety Report 13087409 (Version 1)
Quarter: 2017Q1

REPORT INFORMATION
  Report Type: Spontaneous
  Country: US (occurrence: US)
  Receive Date: 20170104
  Receipt Date: 20170104
  Transmission Date: 20170428
  Serious: No
  Sender: FDA-Public Use
  Company Number: None

PATIENT
  Age: 72 Year
  Sex: Male

DRUGS (1)
  1. SELSUN BLUE NOS [Suspect]
     Active Substance: HYDROCORTISONE\PYRITHIONE ZINC\SALICYLIC ACID\SELENIUM SULFIDE

REACTIONS (5)
  - Product colour issue [None]
  - Eye irritation [None]
  - Corneal disorder [None]
  - Product odour abnormal [None]
  - Lacrimation increased [None]

NARRATIVE: CASE EVENT DATE: 20161208
